FAERS Safety Report 24653004 (Version 1)
Quarter: 2024Q4

REPORT INFORMATION
  Report Type: Spontaneous
  Country: US (occurrence: None)
  Receive Date: 20241122
  Receipt Date: 20241122
  Transmission Date: 20250115
  Serious: Yes (Hospitalization)
  Sender: Public
  Company Number: None

PATIENT
  Sex: Female

DRUGS (2)
  1. STELARA [Suspect]
     Active Substance: USTEKINUMAB
     Indication: Crohn^s disease
     Dosage: 90MG/1ML EVERY 8 WEEKS UNDER THE SKIN?
     Route: 058
     Dates: start: 202409
  2. ILARIS [Concomitant]
     Active Substance: CANAKINUMAB

REACTIONS (1)
  - Gastrointestinal obstruction [None]
